FAERS Safety Report 20053945 (Version 1)
Quarter: 2021Q4

REPORT INFORMATION
  Report Type: Spontaneous
  Country: AE (occurrence: AE)
  Receive Date: 20211110
  Receipt Date: 20211110
  Transmission Date: 20220303
  Serious: No
  Sender: FDA-Public Use
  Company Number: AE-LUPIN PHARMACEUTICALS INC.-2021-21645

PATIENT
  Age: 64 Year
  Sex: Female

DRUGS (6)
  1. AZITHROMYCIN [Suspect]
     Active Substance: AZITHROMYCIN
     Indication: COVID-19
     Dosage: UNK
     Route: 065
  2. LACTOFERRIN [Suspect]
     Active Substance: LACTOFERRIN
     Indication: Supplementation therapy
     Dosage: UNK
     Route: 065
  3. LACTOFERRIN [Suspect]
     Active Substance: LACTOFERRIN
     Indication: COVID-19
  4. PREDNISONE [Suspect]
     Active Substance: PREDNISONE
     Indication: COVID-19
     Dosage: UNK
     Route: 048
  5. VITAMIN C [Concomitant]
     Active Substance: ASCORBIC ACID
     Indication: Vitamin supplementation
     Dosage: UNK
     Route: 065
  6. ZINC [Concomitant]
     Active Substance: ZINC
     Indication: Mineral supplementation
     Dosage: UNK
     Route: 065

REACTIONS (1)
  - Off label use [Unknown]
